FAERS Safety Report 10228711 (Version 1)
Quarter: 2014Q2

REPORT INFORMATION
  Report Type: Spontaneous
  Country: US (occurrence: US)
  Receive Date: 20140610
  Receipt Date: 20140610
  Transmission Date: 20141212
  Serious: No
  Sender: FDA-Public Use
  Company Number: US-ASTRAZENECA-2014SE38366

PATIENT
  Age: 75 Year
  Sex: Male
  Weight: 131.5 kg

DRUGS (8)
  1. PRILOSEC [Suspect]
     Indication: GASTROOESOPHAGEAL REFLUX DISEASE
     Route: 048
     Dates: end: 2013
  2. PRILOSEC [Suspect]
     Indication: GASTROOESOPHAGEAL REFLUX DISEASE
     Dosage: GENERIC
     Route: 048
     Dates: start: 2013
  3. BRILINTA [Suspect]
     Indication: PROPHYLAXIS
     Dosage: UNKNOWN BID
     Route: 048
     Dates: start: 20140418
  4. METOPROLOL TARTRATE [Suspect]
     Route: 065
  5. MELOXICAM [Concomitant]
     Indication: ARTHRITIS
     Dates: end: 20140502
  6. FINASTERIDE [Concomitant]
     Indication: PROSTATIC DISORDER
  7. FLOMAX [Concomitant]
     Indication: PROSTATIC DISORDER
  8. ALLOPURINOL [Concomitant]
     Indication: GOUT

REACTIONS (1)
  - Arthritis [Unknown]
